FAERS Safety Report 5139862-1 (Version None)
Quarter: 2006Q4

REPORT INFORMATION
  Report Type: 
  Country: None (occurrence: None)
  Receive Date: 20061025
  Receipt Date: 20061025
  Transmission Date: 20070319
  Serious: Yes (Hospitalization)
  Sender: FDA-Public Use
  Company Number: None

PATIENT
  Age: 51 Year
  Sex: Male
  Weight: 78.9259 kg

DRUGS (2)
  1. OMEPRAZOLE [Suspect]
     Dosage: 20 MB PO BID
     Route: 048
  2. WARFARIN SODIUM [Suspect]
     Dosage: 15 MG PO DAILY EXCEPT 10  MG PO MON, WED, + FRI ANTICOAGULATION
     Route: 048

REACTIONS (2)
  - HAEMOPTYSIS [None]
  - INTERNATIONAL NORMALISED RATIO INCREASED [None]
